FAERS Safety Report 5718556-5 (Version None)
Quarter: 2008Q2

REPORT INFORMATION
  Report Type: 
  Country: None (occurrence: None)
  Receive Date: 20080425
  Receipt Date: 20080414
  Transmission Date: 20081010
  Serious: Yes (Other)
  Sender: FDA-Public Use
  Company Number: US-PFIZER INC-2008016360

PATIENT
  Sex: Male

DRUGS (6)
  1. CHANTIX [Suspect]
     Indication: SMOKING CESSATION THERAPY
     Route: 048
  2. HYZAAR [Concomitant]
     Indication: BLOOD PRESSURE
     Dosage: TEXT:100/25 MG
  3. GLIPIZIDE [Concomitant]
     Indication: DIABETES MELLITUS
  4. METFORMIN HCL [Concomitant]
     Indication: DIABETES MELLITUS
  5. PRAVASTATIN [Concomitant]
  6. LOVASTATIN [Concomitant]

REACTIONS (1)
  - BLOOD GLUCOSE INCREASED [None]
